FAERS Safety Report 10279483 (Version 1)
Quarter: 2014Q2

REPORT INFORMATION
  Report Type: Spontaneous
  Country: US (occurrence: None)
  Receive Date: 20140630
  Receipt Date: 20140630
  Transmission Date: 20141212
  Serious: Yes (Hospitalization, Other)
  Sender: FDA-Public Use
  Company Number: M-14-038

PATIENT
  Age: 41 Year
  Sex: Female

DRUGS (2)
  1. RIFAMPIN [Suspect]
     Indication: LATENT TUBERCULOSIS
     Dates: start: 201401, end: 201405
  2. COPAXANE [Concomitant]

REACTIONS (1)
  - Hemiplegia [None]
